FAERS Safety Report 16878191 (Version 1)
Quarter: 2019Q4

REPORT INFORMATION
  Report Type: Spontaneous
  Country: US (occurrence: US)
  Receive Date: 20191002
  Receipt Date: 20191002
  Transmission Date: 20200122
  Serious: Yes (Other)
  Sender: FDA-Public Use
  Company Number: US-HORIZON-KRY-0760-2019

PATIENT
  Age: 70 Year
  Sex: Female

DRUGS (1)
  1. KRYSTEXXA [Suspect]
     Active Substance: PEGLOTICASE
     Indication: GOUT
     Dosage: 8MG Q2WEEKS
     Dates: start: 20190903

REACTIONS (4)
  - Blood uric acid increased [Unknown]
  - Intentional dose omission [Unknown]
  - Blood pressure decreased [Unknown]
  - Fall [Unknown]
